FAERS Safety Report 4519003-1 (Version None)
Quarter: 2004Q4

REPORT INFORMATION
  Report Type: 
  Country: None (occurrence: None)
  Receive Date: 20041201
  Receipt Date: 20041116
  Transmission Date: 20050328
  Serious: Yes (Other)
  Sender: FDA-Public Use
  Company Number: 200410031

PATIENT
  Age: 51 Year
  Sex: Female

DRUGS (2)
  1. BOTOX  COSMETIC [Suspect]
     Indication: SKIN WRINKLING
     Dosage: 22 UNITS PRN IM
     Route: 030
     Dates: start: 20041026
  2. FLU SHOT [Concomitant]

REACTIONS (5)
  - ARTHRALGIA [None]
  - ASTHENIA [None]
  - DRUG INEFFECTIVE [None]
  - GUILLAIN-BARRE SYNDROME [None]
  - PAIN IN EXTREMITY [None]
